FAERS Safety Report 12935541 (Version 1)
Quarter: 2016Q4

REPORT INFORMATION
  Report Type: Spontaneous
  Country: US (occurrence: US)
  Receive Date: 20161114
  Receipt Date: 20161114
  Transmission Date: 20170207
  Serious: No
  Sender: FDA-Public Use
  Company Number: US-ORCHID HEALTHCARE-1059488

PATIENT
  Sex: Male
  Weight: 81.82 kg

DRUGS (1)
  1. MODAFINIL. [Suspect]
     Active Substance: MODAFINIL
     Route: 065

REACTIONS (4)
  - Somnolence [Unknown]
  - Activities of daily living impaired [Unknown]
  - Feeling jittery [Unknown]
  - Malaise [Unknown]
